FAERS Safety Report 6066010-6 (Version None)
Quarter: 2009Q1

REPORT INFORMATION
  Report Type: 
  Country: None (occurrence: None)
  Receive Date: 20090205
  Receipt Date: 20090202
  Transmission Date: 20090719
  Serious: Yes (Other)
  Sender: FDA-Public Use
  Company Number: JP-ASTRAZENECA-2009AP00903

PATIENT
  Age: 66 Year
  Sex: Male

DRUGS (4)
  1. CRESTOR [Suspect]
     Indication: DYSLIPIDAEMIA
     Route: 048
     Dates: start: 20080801, end: 20081201
  2. LISINOPRIL [Concomitant]
     Indication: HYPERTENSION
     Dosage: DOSE UNKNOWN
     Route: 048
  3. ADALAT CC [Concomitant]
     Indication: HYPERTENSION
     Dosage: DOSE UNKNOWN
     Route: 048
  4. AGENTS FOR PEPTIC ULCER [Concomitant]
     Indication: HYPERTENSION
     Dosage: DOSE UNKNOWN
     Route: 048

REACTIONS (1)
  - LIVER DISORDER [None]
